FAERS Safety Report 6882878-5 (Version None)
Quarter: 2010Q3

REPORT INFORMATION
  Report Type: 
  Country: None (occurrence: None)
  Receive Date: 20100727
  Receipt Date: 20100712
  Transmission Date: 20110219
  Serious: Yes (Other)
  Sender: FDA-Public Use
  Company Number: 2010002197

PATIENT
  Age: 82 Year
  Sex: Male
  Weight: 48.2 kg

DRUGS (10)
  1. TARCEVA [Suspect]
     Indication: LUNG SQUAMOUS CELL CARCINOMA STAGE UNSPECIFIED
     Dosage: (100 MG, QD), ORAL
     Route: 048
     Dates: start: 20090402, end: 20090515
  2. ENALAPRIL MALEATE [Concomitant]
  3. SERMION (NICERGOLINE) [Concomitant]
  4. URINORM (BENZBROMARONE) [Concomitant]
  5. NAUZELIN (DOMPERIDONE) [Concomitant]
  6. LANSOPRAZOLE [Concomitant]
  7. ADALAT (NIFEDIINE) [Concomitant]
  8. MUCOSOLVAN (AMBROXOL HYDROCHLORIDE) [Concomitant]
  9. TIOTROPIUM BROMIDE [Concomitant]
  10. PREDNISOLONE [Concomitant]

REACTIONS (2)
  - DISORIENTATION [None]
  - MALIGNANT NEOPLASM PROGRESSION [None]
